FAERS Safety Report 6381912-9 (Version None)
Quarter: 2009Q3

REPORT INFORMATION
  Report Type: 
  Country: None (occurrence: None)
  Receive Date: 20090930
  Receipt Date: 20090924
  Transmission Date: 20100115
  Serious: Yes (Other)
  Sender: FDA-Public Use
  Company Number: FR-AVENTIS-200920352GDDC

PATIENT
  Age: 11 Year
  Sex: Male

DRUGS (3)
  1. MINIRIN [Suspect]
     Indication: ENURESIS
     Route: 045
     Dates: start: 20090801, end: 20090831
  2. MINIRIN [Suspect]
     Route: 045
     Dates: start: 20090901, end: 20090901
  3. MINIRIN [Suspect]
     Route: 045
     Dates: start: 20090902

REACTIONS (9)
  - ABDOMINAL PAIN [None]
  - AGITATION [None]
  - DRUG DISPENSING ERROR [None]
  - EXPIRED DRUG ADMINISTERED [None]
  - HEADACHE [None]
  - HYPERHIDROSIS [None]
  - NAUSEA [None]
  - OFF LABEL USE [None]
  - VERTIGO [None]
